FAERS Safety Report 9735583 (Version 1)
Quarter: 2013Q4

REPORT INFORMATION
  Report Type: Spontaneous
  Country: FR (occurrence: FR)
  Receive Date: 20131206
  Receipt Date: 20131206
  Transmission Date: 20140711
  Serious: Yes (Other)
  Sender: FDA-Public Use
  Company Number: FR-SA-2013SA124278

PATIENT
  Age: 58 Year
  Sex: Male

DRUGS (4)
  1. JEVTANA [Suspect]
     Indication: PROSTATE CANCER METASTATIC
     Route: 042
     Dates: start: 20130406, end: 20130406
  2. JEVTANA [Suspect]
     Indication: PROSTATE CANCER METASTATIC
     Route: 042
     Dates: start: 20130427, end: 20130427
  3. JEVTANA [Suspect]
     Indication: PROSTATE CANCER METASTATIC
     Route: 042
     Dates: start: 20130521, end: 20130521
  4. ZYTIGA [Concomitant]
     Dates: start: 20130406

REACTIONS (2)
  - Overdose [Unknown]
  - Drug ineffective [Unknown]
